FAERS Safety Report 18451386 (Version 1)
Quarter: 2020Q4

REPORT INFORMATION
  Report Type: Spontaneous
  Country: US (occurrence: US)
  Receive Date: 20201102
  Receipt Date: 20201102
  Transmission Date: 20210114
  Serious: No
  Sender: FDA-Public Use
  Company Number: US-TEVA-2020-US-1844164

PATIENT
  Sex: Female

DRUGS (1)
  1. NORTRIPTYLINE TEVA [Suspect]
     Active Substance: NORTRIPTYLINE
     Indication: MIGRAINE
     Route: 065

REACTIONS (3)
  - Migraine [Unknown]
  - Product physical issue [Unknown]
  - Drug ineffective [Unknown]

NARRATIVE: CASE EVENT DATE: 202009
